FAERS Safety Report 14229443 (Version 1)
Quarter: 2017Q4

REPORT INFORMATION
  Report Type: Spontaneous
  Country: US (occurrence: None)
  Receive Date: 20171126
  Receipt Date: 20171126
  Transmission Date: 20180321
  Serious: Yes (Hospitalization)
  Sender: FDA-Public Use
  Company Number: None

PATIENT
  Age: 63 Year
  Sex: Male
  Weight: 100.92 kg

DRUGS (1)
  1. HYDROCHLOROTHIAZIDE/LISINOPRIL [Suspect]
     Active Substance: HYDROCHLOROTHIAZIDE\LISINOPRIL
     Indication: HYPERTENSION
     Dosage: 25/20 MG EVERY DAY PO
     Route: 048
     Dates: start: 20170417, end: 20170824

REACTIONS (6)
  - Hypovolaemia [None]
  - Blood creatinine increased [None]
  - Fluid intake reduced [None]
  - Hypotension [None]
  - Acute prerenal failure [None]
  - Blood urea increased [None]

NARRATIVE: CASE EVENT DATE: 20170824
